FAERS Safety Report 9990895 (Version 1)
Quarter: 2014Q1

REPORT INFORMATION
  Report Type: Spontaneous
  Country: US (occurrence: None)
  Receive Date: 20140307
  Receipt Date: 20140307
  Transmission Date: 20141002
  Serious: Yes (Other)
  Sender: FDA-Public Use
  Company Number: None

PATIENT
  Age: 39 Year
  Sex: Female

DRUGS (1)
  1. ZOMIG 2.5MG GLOBAL [Suspect]
     Route: 048
     Dates: start: 201401, end: 201402

REACTIONS (2)
  - Vomiting [None]
  - Migraine [None]
